FAERS Safety Report 20711119 (Version 1)
Quarter: 2022Q2

REPORT INFORMATION
  Report Type: Report from Study
  Country: IN (occurrence: IN)
  Receive Date: 20220414
  Receipt Date: 20220414
  Transmission Date: 20220721
  Serious: Yes (Hospitalization, Other)
  Sender: FDA-Public Use
  Company Number: IN-NOVARTISPH-NVSC2021IN091290

PATIENT
  Age: 36 Year
  Sex: Male

DRUGS (17)
  1. SIMULECT [Suspect]
     Active Substance: BASILIXIMAB
     Indication: Renal transplant
     Dosage: 20 MG (2 VIALS)
     Route: 065
     Dates: start: 20210324, end: 20210328
  2. SIMULECT [Suspect]
     Active Substance: BASILIXIMAB
     Dosage: 40 MG (INDUCTION DOSE)
     Route: 065
  3. RITUXIMAB [Concomitant]
     Active Substance: RITUXIMAB
     Indication: Product used for unknown indication
     Dosage: UNK
     Route: 065
     Dates: start: 20210408
  4. TACROLIMUS [Concomitant]
     Active Substance: TACROLIMUS
     Indication: Product used for unknown indication
     Dosage: UNK (INDUCTION METABOLIZER STARTED 2 DAYS PRIOR TO TRANSPLANT)
     Route: 065
  5. TACROLIMUS [Concomitant]
     Active Substance: TACROLIMUS
     Indication: Product used for unknown indication
     Dosage: UNK, BID (3MG AT 7AM, 3.5 MG AT 7PM)
     Route: 065
  6. MYFORTIC [Concomitant]
     Active Substance: MYCOPHENOLATE SODIUM
     Indication: Product used for unknown indication
     Dosage: 360 MG, BID (2 DAYS PRIOR TO TRANSPLANT AT 8AM, 8PM)
     Route: 065
  7. PREDNISOLONE [Concomitant]
     Active Substance: PREDNISOLONE
     Indication: Product used for unknown indication
     Dosage: 25 MG, QD (AT 10AM)
     Route: 065
     Dates: end: 20210414
  8. PREDNISOLONE [Concomitant]
     Active Substance: PREDNISOLONE
     Dosage: 20 MG, QD
     Route: 065
     Dates: start: 20210415
  9. DILTIAZEM [Concomitant]
     Active Substance: DILTIAZEM
     Indication: Product used for unknown indication
     Dosage: 30 MG, TID (AT 8AM, 2PM, 8PM)
     Route: 065
  10. VALCYTE [Concomitant]
     Active Substance: VALGANCICLOVIR HYDROCHLORIDE
     Indication: Product used for unknown indication
     Dosage: 450 MG, QD
     Route: 065
     Dates: start: 20210401
  11. SEPTRAN [Concomitant]
     Indication: Product used for unknown indication
     Dosage: 0.5 DOSAGE FORM, QD (DS IN THE EVENING)
     Route: 065
     Dates: start: 20210401
  12. MAGNESIUM OXIDE [Concomitant]
     Active Substance: MAGNESIUM OXIDE
     Indication: Product used for unknown indication
     Dosage: 400 MG, BID
     Route: 065
  13. NIFEDIPINE [Concomitant]
     Active Substance: NIFEDIPINE
     Indication: Product used for unknown indication
     Dosage: 20 MG, TID
     Route: 065
  14. ARKAMIN [Concomitant]
     Indication: Product used for unknown indication
     Dosage: 0.1 MG (4 TIMES A DAY)
     Route: 065
  15. INDAPAMIDE [Concomitant]
     Active Substance: INDAPAMIDE
     Indication: Product used for unknown indication
     Dosage: 2.5 MG, QD (5 DAYS)
     Route: 065
  16. ACTRAPID [Concomitant]
     Active Substance: INSULIN HUMAN
     Indication: Product used for unknown indication
     Dosage: UNK (16 IN THE MORNING, AFTERNOON, EVENING)
     Route: 065
  17. LANTUS [Concomitant]
     Active Substance: INSULIN GLARGINE
     Indication: Product used for unknown indication
     Dosage: UNK (18 IN THE MORNING, 26 IN THE EVENING)
     Route: 065

REACTIONS (7)
  - Kidney transplant rejection [Unknown]
  - Renal tubular injury [Unknown]
  - Transplant dysfunction [Unknown]
  - Polyuria [Unknown]
  - Renal vascular resistance increased [Unknown]
  - Blood creatinine increased [Unknown]
  - Weight increased [Unknown]

NARRATIVE: CASE EVENT DATE: 20210329
